FAERS Safety Report 6050771-6 (Version None)
Quarter: 2009Q1

REPORT INFORMATION
  Report Type: 
  Country: None (occurrence: None)
  Receive Date: 20090121
  Receipt Date: 20090105
  Transmission Date: 20090719
  Serious: Yes (Hospitalization, Other)
  Sender: FDA-Public Use
  Company Number: 2009S1000150

PATIENT
  Age: 57 Year
  Sex: Female

DRUGS (2)
  1. AMIODARONE            (AMIODARONE) (200 MG) [Suspect]
     Indication: MITRAL VALVE REPLACEMENT
     Dosage: 200 MG; DAILY; ORAL
     Route: 048
     Dates: start: 20071005
  2. ASPIRIN [Concomitant]

REACTIONS (4)
  - LOWER RESPIRATORY TRACT INFECTION [None]
  - MALAISE [None]
  - MEDICATION RESIDUE [None]
  - PULMONARY FIBROSIS [None]
